FAERS Safety Report 6126351-0 (Version None)
Quarter: 2009Q1

REPORT INFORMATION
  Report Type: 
  Country: None (occurrence: None)
  Receive Date: 20090320
  Receipt Date: 20090312
  Transmission Date: 20090719
  Serious: Yes (Hospitalization, Other)
  Sender: FDA-Public Use
  Company Number: BR-ABBOTT-09P-020-0562396-00

PATIENT
  Sex: Female
  Weight: 58 kg

DRUGS (6)
  1. HUMIRA [Suspect]
     Indication: RHEUMATOID ARTHRITIS
     Route: 058
     Dates: start: 20050810
  2. BESEROL [Concomitant]
     Indication: PAIN IN EXTREMITY
  3. ARCOXIA [Concomitant]
     Indication: DRUG USE FOR UNKNOWN INDICATION
     Dates: end: 20081001
  4. CAPOTEN [Concomitant]
     Indication: HYPERTENSION
  5. PANTOPRAZOLE SODIUM [Concomitant]
     Indication: GASTRITIS
  6. CALCORT [Concomitant]
     Indication: ARTHRALGIA

REACTIONS (3)
  - ALOPECIA [None]
  - DEVICE DISLOCATION [None]
  - PNEUMONIA [None]
